FAERS Safety Report 8072672-4 (Version None)
Quarter: 2012Q1

REPORT INFORMATION
  Report Type: 
  Country: None (occurrence: None)
  Receive Date: 20120126
  Receipt Date: 20120118
  Transmission Date: 20120608
  Serious: Yes (Hospitalization)
  Sender: FDA-Public Use
  Company Number: US-JNJFOC-20110202036

PATIENT
  Sex: Male
  Weight: 77.2 kg

DRUGS (15)
  1. REMICADE [Suspect]
     Indication: INFLAMMATORY BOWEL DISEASE
     Route: 042
     Dates: start: 20081201, end: 20090130
  2. PEPCID [Concomitant]
  3. LIALDA [Concomitant]
     Route: 048
  4. DILAUDID [Concomitant]
  5. IMURAN [Concomitant]
  6. CIMZIA [Concomitant]
     Dates: start: 20091106
  7. MESALAMINE [Concomitant]
  8. PREDNISONE TAB [Concomitant]
  9. MULTI-VITAMINS [Concomitant]
  10. OSCAL VITAMIN D [Concomitant]
  11. HYDROCORTISONE [Concomitant]
  12. CIMZIA [Concomitant]
     Indication: INFLAMMATORY BOWEL DISEASE
     Dates: start: 20100826
  13. ANTIBIOTICS [Concomitant]
     Indication: INFLAMMATORY BOWEL DISEASE
  14. VICODIN [Concomitant]
     Dosage: 5/500 MG
  15. IRON SUPPLEMENT [Concomitant]

REACTIONS (3)
  - INFLAMMATORY BOWEL DISEASE [None]
  - PYREXIA [None]
  - NAUSEA [None]
